FAERS Safety Report 10896242 (Version 3)
Quarter: 2015Q1

REPORT INFORMATION
  Report Type: Spontaneous
  Country: US (occurrence: US)
  Receive Date: 20150307
  Receipt Date: 20150310
  Transmission Date: 20150721
  Serious: Yes (Hospitalization)
  Sender: FDA-Public Use
  Company Number: US-AUROBINDO-AUR-APL-2015-01980

PATIENT
  Age: 69 Year
  Sex: Female
  Weight: 79 kg

DRUGS (10)
  1. XANAX [Concomitant]
     Active Substance: ALPRAZOLAM
     Indication: SLEEP DISORDER
     Dosage: 0.5 MG, UNK
     Route: 048
  2. ATENOLOL TABLETS USP 25 MG [Suspect]
     Active Substance: ATENOLOL
     Indication: CHEST PAIN
     Dosage: 25 MG, DAILY
     Route: 048
  3. BENICAR [Concomitant]
     Active Substance: OLMESARTAN MEDOXOMIL
     Indication: HYPERTENSION
     Dosage: 40 MG, DAILY
     Route: 048
     Dates: start: 201410
  4. BENICAR HCT [Concomitant]
     Active Substance: HYDROCHLOROTHIAZIDE\OLMESARTAN MEDOXOMIL
     Indication: HYPERTENSION
     Dosage: 40 MG, DAILY
     Route: 048
     Dates: start: 201103, end: 201410
  5. CARDIZEM LA [Concomitant]
     Active Substance: DILTIAZEM HYDROCHLORIDE
     Indication: HEART RATE INCREASED
     Dosage: 120 MG, DAILY
     Route: 048
     Dates: start: 201410
  6. NEXIUM [Suspect]
     Active Substance: ESOMEPRAZOLE MAGNESIUM
     Indication: GASTROOESOPHAGEAL REFLUX DISEASE
     Dosage: 40 MG, DAILY
     Route: 065
  7. CARDIZEM LA [Concomitant]
     Active Substance: DILTIAZEM HYDROCHLORIDE
     Indication: CHEST PAIN
     Dosage: 180 MG, DAILY
     Route: 048
     Dates: end: 201410
  8. MIRALAX [Concomitant]
     Active Substance: POLYETHYLENE GLYCOL 3350
     Indication: CONSTIPATION
     Route: 048
  9. METOPROLOL [Suspect]
     Active Substance: METOPROLOL
     Indication: PRODUCT USED FOR UNKNOWN INDICATION
     Dosage: UNK
     Route: 048
     Dates: start: 201103, end: 201103
  10. ATENOLOL TABLETS USP 25 MG [Suspect]
     Active Substance: ATENOLOL
     Indication: HEART RATE INCREASED
     Dosage: 25 MG, TWO TIMES A DAY
     Route: 048

REACTIONS (21)
  - Panic attack [Unknown]
  - Muscle spasms [Unknown]
  - Pollakiuria [Unknown]
  - Cardiac disorder [Unknown]
  - Osteoarthritis [Unknown]
  - Bladder discomfort [Unknown]
  - Body height decreased [Unknown]
  - Feeling abnormal [Unknown]
  - Irritable bowel syndrome [Unknown]
  - Chest discomfort [Unknown]
  - Musculoskeletal discomfort [Unknown]
  - Heart rate increased [Recovered/Resolved]
  - Bowel movement irregularity [Unknown]
  - Back disorder [Unknown]
  - Abdominal pain upper [Unknown]
  - Intentional product misuse [Unknown]
  - Chest pain [Recovered/Resolved]
  - Hypertension [Unknown]
  - Hearing impaired [Unknown]
  - Abdominal discomfort [Unknown]
  - Sleep disorder due to general medical condition, insomnia type [Unknown]

NARRATIVE: CASE EVENT DATE: 201103
